FAERS Safety Report 9899402 (Version 2)
Quarter: 2014Q1

REPORT INFORMATION
  Report Type: Report from Study
  Country: ES (occurrence: ES)
  Receive Date: 20140214
  Receipt Date: 20140214
  Transmission Date: 20141002
  Serious: Yes (Death, Life-Threatening, Hospitalization)
  Sender: FDA-Public Use
  Company Number: ES-SA-CLOF-1002010

PATIENT
  Age: 76 Year
  Sex: Male
  Weight: 110 kg

DRUGS (4)
  1. CLOFARABINE [Suspect]
     Indication: ACUTE MYELOID LEUKAEMIA
     Dosage: 15 UNK, UNK
     Route: 042
     Dates: start: 20111121, end: 20111125
  2. CLOFARABINE [Suspect]
     Indication: ACUTE MYELOID LEUKAEMIA
     Dosage: 15 MG/M2, UNK
     Route: 042
     Dates: start: 20120109, end: 20120113
  3. CYTARABINE [Suspect]
     Indication: ACUTE MYELOID LEUKAEMIA
     Dosage: UNK
     Route: 058
     Dates: start: 20111121, end: 20111205
  4. CYTARABINE [Suspect]
     Indication: ACUTE MYELOID LEUKAEMIA
     Dosage: 20 MG/M2, UNK
     Route: 058
     Dates: start: 20120109, end: 20120115

REACTIONS (2)
  - Disease progression [Fatal]
  - Febrile neutropenia [Recovered/Resolved]
